FAERS Safety Report 7123000-X (Version None)
Quarter: 2010Q4

REPORT INFORMATION
  Report Type: 
  Country: None (occurrence: None)
  Receive Date: 20101124
  Receipt Date: 20101110
  Transmission Date: 20110411
  Serious: Yes (Hospitalization, Other)
  Sender: FDA-Public Use
  Company Number: DE-AMGEN-DEUSP2010000235

PATIENT

DRUGS (12)
  1. PROLIA [Suspect]
     Indication: OSTEOPOROSIS POSTMENOPAUSAL
     Dosage: 60 MG, UNK
     Route: 058
     Dates: start: 20100906
  2. METOPROLOL SUCCINATE [Concomitant]
  3. KREON                              /00014701/ [Concomitant]
  4. CALCIGEN [Concomitant]
  5. QUENSYL [Concomitant]
  6. MAGNESIUM [Concomitant]
  7. ROCALTROL [Concomitant]
  8. TORSEMIDE [Concomitant]
  9. OMEPAK [Concomitant]
  10. EXFORGE                            /01634301/ [Concomitant]
  11. LEFAX                              /00282601/ [Concomitant]
  12. VITAMIN B12                        /00056201/ [Concomitant]

REACTIONS (9)
  - AORTIC ARTERIOSCLEROSIS [None]
  - CONVULSION [None]
  - HYPERPHOSPHATAEMIA [None]
  - HYPOCALCAEMIA [None]
  - MUSCLE SPASMS [None]
  - MUSCULOSKELETAL STIFFNESS [None]
  - OSTEOPENIA [None]
  - PARAESTHESIA [None]
  - SPINAL FRACTURE [None]
